FAERS Safety Report 24921727 (Version 1)
Quarter: 2025Q1

REPORT INFORMATION
  Report Type: Spontaneous
  Country: US (occurrence: None)
  Receive Date: 20250203
  Receipt Date: 20250203
  Transmission Date: 20250409
  Serious: Yes (Life-Threatening, Hospitalization)
  Sender: FDA-CTU
  Company Number: None

PATIENT
  Age: 18 Year
  Sex: Male
  Weight: 12.4 kg

DRUGS (3)
  1. CALASPARGASE PEGOL-MKNL [Suspect]
     Active Substance: CALASPARGASE PEGOL-MKNL
     Route: 042
     Dates: start: 20250127, end: 20250127
  2. FAMOTIDINE [Concomitant]
     Active Substance: FAMOTIDINE
  3. DIPHENHYDRAMINE [Concomitant]
     Active Substance: DIPHENHYDRAMINE

REACTIONS (4)
  - Infusion related reaction [None]
  - Anaphylactic reaction [None]
  - Flushing [None]
  - Vomiting [None]

NARRATIVE: CASE EVENT DATE: 20250127
